FAERS Safety Report 4443427-4 (Version None)
Quarter: 2004Q3

REPORT INFORMATION
  Report Type: 
  Country: None (occurrence: None)
  Receive Date: 20040903
  Receipt Date: 20040903
  Transmission Date: 20050211
  Serious: Yes (Other)
  Sender: FDA-Public Use
  Company Number: None

PATIENT
  Sex: Female
  Weight: 62.1428 kg

DRUGS (2)
  1. IBUPROFEN [Suspect]
     Indication: OSTEOARTHRITIS
     Dosage: 800 MG TID PO
     Route: 048
  2. ALEVE [Suspect]
     Indication: OSTEOARTHRITIS
     Dosage: ONE PO BID
     Route: 048

REACTIONS (1)
  - DYSPNOEA [None]
